FAERS Safety Report 24178496 (Version 2)
Quarter: 2024Q3

REPORT INFORMATION
  Report Type: Spontaneous
  Country: AU (occurrence: AU)
  Receive Date: 20240806
  Receipt Date: 20240916
  Transmission Date: 20241017
  Serious: Yes (Life-Threatening)
  Sender: TERSERA THERAPEUTICS
  Company Number: AU-AstraZeneca-2024-264301

PATIENT

DRUGS (2)
  1. GOSERELIN [Suspect]
     Active Substance: GOSERELIN
     Indication: Prostate cancer
     Dosage: 3.6 MILLIGRAM, MONTHLY
     Route: 058
     Dates: start: 20230814
  2. ZOLADEX [Suspect]
     Active Substance: GOSERELIN ACETATE
     Indication: Prostate cancer
     Dosage: UNK
     Route: 065

REACTIONS (2)
  - Bone cancer [Recovered/Resolved]
  - Bone pain [Recovered/Resolved]
